FAERS Safety Report 13076080 (Version 1)
Quarter: 2016Q4

REPORT INFORMATION
  Report Type: Spontaneous
  Country: FR (occurrence: FR)
  Receive Date: 20161230
  Receipt Date: 20161230
  Transmission Date: 20170207
  Serious: Yes (Hospitalization)
  Sender: FDA-Public Use
  Company Number: FR-ABBVIE-16P-056-1826278-00

PATIENT
  Age: 84 Year
  Sex: Male

DRUGS (4)
  1. AUGMENTIN [Concomitant]
     Active Substance: AMOXICILLIN\CLAVULANATE POTASSIUM
     Indication: PRODUCT USED FOR UNKNOWN INDICATION
     Route: 065
     Dates: start: 20160823, end: 20160907
  2. ZECLAR [Suspect]
     Active Substance: CLARITHROMYCIN
     Indication: LUNG INFECTION
     Route: 048
     Dates: start: 20160823, end: 20160907
  3. ZECLAR INJECTION [Suspect]
     Active Substance: CLARITHROMYCIN
     Indication: LUNG DISORDER
     Route: 065
     Dates: start: 20160907, end: 20160929
  4. PREVISCAN (PENTOXIFYLLINE) [Concomitant]
     Active Substance: PENTOXIFYLLINE
     Indication: PRODUCT USED FOR UNKNOWN INDICATION
     Route: 065

REACTIONS (3)
  - Acute kidney injury [Recovered/Resolved with Sequelae]
  - Thrombocytopenia [Recovered/Resolved]
  - Nephropathy [Recovered/Resolved with Sequelae]

NARRATIVE: CASE EVENT DATE: 20160827
